FAERS Safety Report 6238141-9 (Version None)
Quarter: 2009Q2

REPORT INFORMATION
  Report Type: 
  Country: None (occurrence: None)
  Receive Date: 20090617
  Receipt Date: 20090608
  Transmission Date: 20091009
  Serious: Yes (Hospitalization)
  Sender: FDA-Public Use
  Company Number: ADR3382009

PATIENT
  Age: 79 Year
  Sex: Male

DRUGS (11)
  1. RAMIPRIL [Suspect]
     Indication: HYPERTENSION
     Dosage: 1.25 MG , ORAL
     Route: 048
     Dates: start: 20080620
  2. TORASEMIDE 10 MG [Concomitant]
  3. XIPAMIDE 5 MG [Concomitant]
  4. METOCLOPRAMIDE 5.33 MG [Concomitant]
  5. PANTOZOL 40 MG [Concomitant]
  6. METAMIZOL NATRIUM 500 MG [Concomitant]
  7. ALLOPURINOL [Concomitant]
  8. SIMVASTATIN [Concomitant]
  9. RISPERIDONE [Concomitant]
  10. SPIRONOLACTONE [Concomitant]
  11. FALITHROM ^HEXAL^ (PHENPROCOUMON) [Concomitant]

REACTIONS (3)
  - DRUG INTERACTION [None]
  - ELECTROLYTE DEPLETION [None]
  - PROTHROMBIN TIME PROLONGED [None]
